FAERS Safety Report 5443004-2 (Version None)
Quarter: 2007Q3

REPORT INFORMATION
  Report Type: 
  Country: None (occurrence: None)
  Receive Date: 20070822
  Receipt Date: 20070810
  Transmission Date: 20080115
  Serious: Yes (Other)
  Sender: FDA-Public Use
  Company Number: 200712131

PATIENT
  Age: 58 Year
  Sex: Female
  Weight: 84.8226 kg

DRUGS (11)
  1. HUMATE-P [Suspect]
     Indication: SURGERY
     Dosage: 1000 U BID IV
     Route: 042
     Dates: start: 20070801, end: 20070802
  2. HUMATE-P [Suspect]
     Indication: VON WILLEBRAND'S DISEASE
     Dosage: 1000 U BID IV
     Route: 042
     Dates: start: 20070801, end: 20070802
  3. DICLOFENAC [Concomitant]
  4. CIPRO [Concomitant]
  5. FLUTICASONE PROPIONATE [Concomitant]
  6. CLONAZEPAM [Concomitant]
  7. DOMPERIDONE [Concomitant]
  8. ESOMEPRAZOLE MAGNESIUM [Concomitant]
  9. CITALOPRAM HYDROBROMIDE [Concomitant]
  10. BUPROPION HCL [Concomitant]
  11. ADVAIR DISKUS 100/50 [Concomitant]

REACTIONS (6)
  - FLUID RETENTION [None]
  - HYPERSENSITIVITY [None]
  - INSOMNIA [None]
  - PULMONARY OEDEMA [None]
  - VENOUS PRESSURE JUGULAR INCREASED [None]
  - WEIGHT INCREASED [None]
